FAERS Safety Report 15929551 (Version 1)
Quarter: 2019Q1

REPORT INFORMATION
  Report Type: Spontaneous
  Country: US (occurrence: US)
  Receive Date: 20190206
  Receipt Date: 20190206
  Transmission Date: 20190417
  Serious: No
  Sender: FDA-Public Use
  Company Number: US-SA-2019SA032075

PATIENT

DRUGS (4)
  1. HYDROXYCHLOROQUINE [Suspect]
     Active Substance: HYDROXYCHLOROQUINE
     Dosage: UNK UNK, UNK
     Route: 065
     Dates: start: 201611
  2. PREDNISONE. [Suspect]
     Active Substance: PREDNISONE
     Dosage: UNK UNK, UNK
     Route: 065
     Dates: start: 201606
  3. ARAVA [Suspect]
     Active Substance: LEFLUNOMIDE
     Dosage: UNK UNK, UNK
     Route: 065
     Dates: start: 201706, end: 201709
  4. METHOTREXATE. [Suspect]
     Active Substance: METHOTREXATE
     Dosage: UNK UNK, UNK
     Route: 065
     Dates: start: 201606, end: 201706

REACTIONS (5)
  - Unevaluable event [Unknown]
  - Alopecia [Unknown]
  - Drug intolerance [Unknown]
  - Adverse event [Unknown]
  - Drug ineffective [Unknown]
